FAERS Safety Report 25907542 (Version 2)
Quarter: 2025Q4

REPORT INFORMATION
  Report Type: Spontaneous
  Country: JP (occurrence: JP)
  Receive Date: 20251010
  Receipt Date: 20251030
  Transmission Date: 20260118
  Serious: Yes (Other)
  Sender: RANBAXY
  Company Number: JP-SUN PHARMACEUTICAL INDUSTRIES INC-2025R1-530930

PATIENT
  Age: 65 Year
  Sex: Male
  Weight: 66 kg

DRUGS (3)
  1. DOCETAXEL [Suspect]
     Active Substance: DOCETAXEL
     Indication: Squamous cell carcinoma
     Dosage: 80 MILLIGRAM, QD DAY 1
     Route: 065
     Dates: start: 202103
  2. FLUOROURACIL [Suspect]
     Active Substance: FLUOROURACIL
     Indication: Squamous cell carcinoma
     Dosage: 500-750 MG/DAY
     Route: 065
     Dates: start: 202103
  3. NEDAPLATIN [Suspect]
     Active Substance: NEDAPLATIN
     Indication: Squamous cell carcinoma
     Dosage: 20 MILLIGRAM, QD
     Route: 065
     Dates: start: 202103

REACTIONS (6)
  - Oesophageal obstruction [Recovered/Resolved]
  - Neoplasm progression [Recovered/Resolved]
  - Neutropenia [Recovering/Resolving]
  - Febrile neutropenia [Recovering/Resolving]
  - Stenosis [Recovering/Resolving]
  - Decreased appetite [Recovered/Resolved]
